FAERS Safety Report 7889490-X (Version None)
Quarter: 2011Q4

REPORT INFORMATION
  Report Type: 
  Country: None (occurrence: None)
  Receive Date: 20111103
  Receipt Date: 20111025
  Transmission Date: 20120403
  Serious: Yes (Hospitalization)
  Sender: FDA-Public Use
  Company Number: US-ABBOTT-11P-163-0868489-00

PATIENT
  Sex: Male
  Weight: 72.64 kg

DRUGS (11)
  1. ALBUTEROL [Concomitant]
     Indication: PNEUMOCONIOSIS
  2. ASMANEX TWISTHALER [Concomitant]
     Indication: PNEUMOCONIOSIS
  3. HUMIRA [Suspect]
     Dates: start: 20101101
  4. ALBUTEROL [Concomitant]
     Indication: CHRONIC OBSTRUCTIVE PULMONARY DISEASE
     Dosage: NEBULIZER
  5. HUMIRA [Suspect]
     Indication: CROHN'S DISEASE
     Dates: start: 20070101, end: 20100701
  6. UNKNOWN MEDICATION [Concomitant]
     Indication: HYPERTENSION
  7. ATROVENT [Concomitant]
     Indication: PNEUMOCONIOSIS
  8. ALBUTEROL [Concomitant]
  9. ALBUTEROL [Concomitant]
  10. ATROVENT [Concomitant]
     Indication: CHRONIC OBSTRUCTIVE PULMONARY DISEASE
  11. ASMANEX TWISTHALER [Concomitant]
     Indication: CHRONIC OBSTRUCTIVE PULMONARY DISEASE

REACTIONS (10)
  - DERMATITIS [None]
  - CROHN'S DISEASE [None]
  - DIARRHOEA [None]
  - POISONING [None]
  - IMPAIRED HEALING [None]
  - HAEMATOCHEZIA [None]
  - ABDOMINAL PAIN [None]
  - MUCOUS STOOLS [None]
  - STAPHYLOCOCCAL INFECTION [None]
  - CONSTIPATION [None]
